FAERS Safety Report 11708968 (Version 2)
Quarter: 2015Q4

REPORT INFORMATION
  Report Type: Spontaneous
  Country: US (occurrence: US)
  Receive Date: 20151104
  Receipt Date: 20151110
  Transmission Date: 20160304
  Serious: No
  Sender: FDA-Public Use
  Company Number: US-ELI_LILLY_AND_COMPANY-US201102005026

PATIENT
  Age: 59 Year
  Sex: Female

DRUGS (4)
  1. FORTEO [Suspect]
     Active Substance: TERIPARATIDE
     Dosage: 20 UG, DAILY (1/D)
     Dates: start: 20110309
  2. FORTEO [Suspect]
     Active Substance: TERIPARATIDE
     Dosage: 20 UG, QD
  3. FORTEO [Suspect]
     Active Substance: TERIPARATIDE
     Indication: OSTEOPOROSIS
     Dosage: 20 UG, DAILY (1/D)
     Dates: start: 20110112
  4. FORTEO [Suspect]
     Active Substance: TERIPARATIDE
     Dosage: 20 UG, QD

REACTIONS (16)
  - Limb discomfort [Not Recovered/Not Resolved]
  - Hypotension [Unknown]
  - Intervertebral disc protrusion [Unknown]
  - Cardiac flutter [Unknown]
  - Hypertension [Unknown]
  - Injection site bruising [Unknown]
  - Neck pain [Recovered/Resolved]
  - Injection site pruritus [Unknown]
  - Headache [Recovering/Resolving]
  - Muscle swelling [Recovered/Resolved]
  - Neck pain [Unknown]
  - Injection site pain [Not Recovered/Not Resolved]
  - Posture abnormal [Unknown]
  - Injection site erythema [Recovered/Resolved]
  - Injection site haemorrhage [Unknown]
  - Injection site swelling [Unknown]

NARRATIVE: CASE EVENT DATE: 20110309
